FAERS Safety Report 6145048-4 (Version None)
Quarter: 2009Q2

REPORT INFORMATION
  Report Type: 
  Country: None (occurrence: None)
  Receive Date: 20090401
  Receipt Date: 20090401
  Transmission Date: 20091009
  Serious: No
  Sender: FDA-Public Use
  Company Number: None

PATIENT
  Age: 37 Year
  Sex: Male
  Weight: 90.7194 kg

DRUGS (1)
  1. CITALOPRAM HYDROBROMIDE [Suspect]
     Indication: STRESS
     Dosage: 20 MG EVERY DAY PO
     Route: 048
     Dates: start: 20090213, end: 20090219

REACTIONS (2)
  - DYSKINESIA [None]
  - TIC [None]
